FAERS Safety Report 14236467 (Version 4)
Quarter: 2018Q1

REPORT INFORMATION
  Report Type: Spontaneous
  Country: US (occurrence: US)
  Receive Date: 20171129
  Receipt Date: 20180219
  Transmission Date: 20180508
  Serious: No
  Sender: FDA-Public Use
  Company Number: US-PFIZER INC-2017511695

PATIENT
  Age: 73 Year
  Sex: Female

DRUGS (1)
  1. COLESTIPOL HCL [Suspect]
     Active Substance: COLESTIPOL HYDROCHLORIDE
     Indication: BOWEL MOVEMENT IRREGULARITY
     Dosage: 2 G, 1X/DAY
     Route: 048
     Dates: start: 20171125

REACTIONS (3)
  - Dysphagia [Unknown]
  - Product use in unapproved indication [Unknown]
  - Product size issue [Unknown]

NARRATIVE: CASE EVENT DATE: 201711
